FAERS Safety Report 21377499 (Version 1)
Quarter: 2022Q3

REPORT INFORMATION
  Report Type: Spontaneous
  Country: US (occurrence: US)
  Receive Date: 20220926
  Receipt Date: 20220926
  Transmission Date: 20221026
  Serious: Yes (Other)
  Sender: FDA-Public Use
  Company Number: US-BIOGEN-2022BI01156841

PATIENT
  Age: 42 Year
  Sex: Female

DRUGS (1)
  1. VUMERITY [Suspect]
     Active Substance: DIROXIMEL FUMARATE
     Indication: Multiple sclerosis
     Route: 050

REACTIONS (9)
  - Blindness unilateral [Unknown]
  - Post procedural complication [Unknown]
  - Central nervous system lesion [Unknown]
  - Diplopia [Unknown]
  - Strabismus [Unknown]
  - Visual acuity reduced [Unknown]
  - Anxiety [Unknown]
  - Depression [Unknown]
  - Flushing [Unknown]

NARRATIVE: CASE EVENT DATE: 20220501
